FAERS Safety Report 12319889 (Version 1)
Quarter: 2016Q2

REPORT INFORMATION
  Report Type: Spontaneous
  Country: GB (occurrence: GB)
  Receive Date: 20160429
  Receipt Date: 20160429
  Transmission Date: 20160815
  Serious: Yes (Hospitalization)
  Sender: FDA-Public Use
  Company Number: GB-MYLANLABS-2016M1016584

PATIENT

DRUGS (3)
  1. AZATHIOPRINE TABLETS 25 MG [Suspect]
     Active Substance: AZATHIOPRINE
     Indication: IMMUNOSUPPRESSION
     Dosage: UNK
  2. AZATHIOPRIN [Suspect]
     Active Substance: AZATHIOPRINE
     Indication: IMMUNOSUPPRESSION
     Dosage: UNK
  3. ADVAGRAF [Suspect]
     Active Substance: TACROLIMUS
     Indication: IMMUNOSUPPRESSION
     Dosage: UNK

REACTIONS (1)
  - Night sweats [Unknown]
